FAERS Safety Report 15968697 (Version 2)
Quarter: 2019Q1

REPORT INFORMATION
  Report Type: Spontaneous
  Country: GB (occurrence: GB)
  Receive Date: 20190215
  Receipt Date: 20190326
  Transmission Date: 20190418
  Serious: Yes (Death)
  Sender: FDA-Public Use
  Company Number: GB-MYLANLABS-2019M1015257

PATIENT
  Age: 57 Year
  Sex: Male

DRUGS (2)
  1. CLOZARIL [Suspect]
     Active Substance: CLOZAPINE
     Indication: SCHIZOPHRENIA
     Dosage: 175 MILLIGRAM, AM
     Route: 048
     Dates: start: 20010701
  2. CLOZARIL [Suspect]
     Active Substance: CLOZAPINE
     Dosage: 300 MILLIGRAM, PM
     Route: 048
     Dates: start: 20010701

REACTIONS (1)
  - Death [Fatal]
